FAERS Safety Report 4781585-2 (Version None)
Quarter: 2005Q3

REPORT INFORMATION
  Report Type: 
  Country: None (occurrence: None)
  Receive Date: 20050927
  Receipt Date: 20050915
  Transmission Date: 20060218
  Serious: Yes (Hospitalization)
  Sender: FDA-Public Use
  Company Number: 2005122845

PATIENT
  Age: 26 Year
  Sex: Female

DRUGS (3)
  1. BEXTRA [Suspect]
     Indication: BREAST OPERATION
     Dosage: 80 MG (40 MG, 2 IN 1 D), ORAL
     Route: 048
     Dates: start: 20050112, end: 20050303
  2. CIPROFLOXACIN HCL [Concomitant]
  3. ANTIBIOTICS (ANTIBIOTICS) [Concomitant]

REACTIONS (4)
  - DEVICE FAILURE [None]
  - GENITAL PRURITUS FEMALE [None]
  - HYPERSENSITIVITY [None]
  - RASH ERYTHEMATOUS [None]
